FAERS Safety Report 6587766-X (Version None)
Quarter: 2010Q1

REPORT INFORMATION
  Report Type: 
  Country: None (occurrence: None)
  Receive Date: 20100218
  Receipt Date: 20100203
  Transmission Date: 20100710
  Serious: Yes (Other)
  Sender: FDA-Public Use
  Company Number: PHHY2010CA03891

PATIENT
  Sex: Female

DRUGS (1)
  1. ACLASTA [Suspect]
     Indication: OSTEOPOROSIS
     Dosage: 5 MG/ 1 YEAR
     Route: 042
     Dates: start: 20100111

REACTIONS (5)
  - ARTHRALGIA [None]
  - INFLAMMATION [None]
  - INFLUENZA LIKE ILLNESS [None]
  - LOCALISED INFECTION [None]
  - PAIN IN EXTREMITY [None]
